FAERS Safety Report 18396216 (Version 4)
Quarter: 2021Q1

REPORT INFORMATION
  Report Type: Spontaneous
  Country: AU (occurrence: AU)
  Receive Date: 20201019
  Receipt Date: 20210305
  Transmission Date: 20210419
  Serious: Yes (Hospitalization)
  Sender: FDA-Public Use
  Company Number: AU-ROCHE-2697396

PATIENT
  Sex: Female

DRUGS (3)
  1. LENVATINIB [Concomitant]
     Active Substance: LENVATINIB
  2. TECENTRIQ [Suspect]
     Active Substance: ATEZOLIZUMAB
     Indication: HEPATOCELLULAR CARCINOMA
     Route: 042
  3. AVASTIN [Suspect]
     Active Substance: BEVACIZUMAB
     Indication: HEPATOCELLULAR CARCINOMA
     Route: 042

REACTIONS (5)
  - Off label use [Unknown]
  - Colitis [Unknown]
  - Lymphadenopathy [Unknown]
  - Intentional product use issue [Unknown]
  - Viral infection [Unknown]
